FAERS Safety Report 17670483 (Version 6)
Quarter: 2020Q3

REPORT INFORMATION
  Report Type: Report from Study
  Country: US (occurrence: US)
  Receive Date: 20200415
  Receipt Date: 20200806
  Transmission Date: 20201102
  Serious: Yes (Death, Life-Threatening)
  Sender: FDA-Public Use
  Company Number: US-SA-2020SA095091

PATIENT

DRUGS (17)
  1. CEFTRIAXONE. [Concomitant]
     Active Substance: CEFTRIAXONE
     Indication: PNEUMONIA BACTERIAL
     Dosage: 1000 MG, QD
     Route: 042
     Dates: start: 20200406, end: 20200406
  2. HYDROXYCHLOROQUINE [Concomitant]
     Active Substance: HYDROXYCHLOROQUINE
     Indication: COVID-19
     Dosage: 400 MG, Q12H
     Route: 048
     Dates: start: 20200329, end: 20200403
  3. MIDAZOLAM. [Concomitant]
     Active Substance: MIDAZOLAM
     Indication: SEDATION
     Dosage: 2 MG/ML, CONTINUOUS INFUSION
     Route: 042
     Dates: start: 20200407, end: 20200412
  4. ADENOSINE. [Concomitant]
     Active Substance: ADENOSINE
     Indication: ARRHYTHMIA
     Dosage: 12 MG, 1X
     Route: 042
     Dates: start: 20200407, end: 20200407
  5. ADENOSINE. [Concomitant]
     Active Substance: ADENOSINE
     Dosage: 6 MG, 1X
     Route: 042
     Dates: start: 20200407, end: 20200407
  6. CEFTRIAXONE. [Concomitant]
     Active Substance: CEFTRIAXONE
     Indication: LEUKOCYTOSIS
  7. NOREPINEPHRINE. [Concomitant]
     Active Substance: NOREPINEPHRINE
     Indication: SHOCK
     Dosage: 1?30 MCG/MIN, CONTINUOUS INFUSION
     Route: 042
     Dates: start: 20200407, end: 20200412
  8. FENTANYL. [Concomitant]
     Active Substance: FENTANYL
     Indication: SEDATION
     Dosage: 250 UG, CONTINOUS INFUSION
     Route: 042
     Dates: start: 20200407, end: 20200412
  9. EPINEPHRINE. [Concomitant]
     Active Substance: EPINEPHRINE
     Indication: SHOCK
     Dosage: 0.5 MG, 1X
     Route: 042
     Dates: start: 20200407, end: 20200407
  10. AMIODARONE [Concomitant]
     Active Substance: AMIODARONE
     Indication: ARRHYTHMIA
     Dosage: 0.5 MG, CONTINOUS INFUSION
     Route: 042
     Dates: start: 20200408, end: 20200409
  11. AZITHROMYCIN ANHYDROUS. [Concomitant]
     Active Substance: AZITHROMYCIN ANHYDROUS
     Indication: COVID-19
     Dosage: 500 MG, QD
     Route: 048
     Dates: start: 20200330, end: 20200330
  12. AZITHROMYCIN ANHYDROUS. [Concomitant]
     Active Substance: AZITHROMYCIN ANHYDROUS
     Dosage: 250 MG, QD
     Route: 048
     Dates: start: 20200331, end: 20200403
  13. SARILUMAB [Suspect]
     Active Substance: SARILUMAB
     Indication: COVID-19
     Dosage: 400 MG, 1X
     Route: 042
     Dates: start: 20200331, end: 20200331
  14. CARDIZEM [Concomitant]
     Active Substance: DILTIAZEM HYDROCHLORIDE
     Indication: ARRHYTHMIA
     Dosage: 15 MG, 1X
     Route: 042
     Dates: start: 20200407, end: 20200407
  15. AMIODARONE [Concomitant]
     Active Substance: AMIODARONE
     Dosage: 400 MG, Q12H
     Route: 048
     Dates: start: 20200409, end: 20200412
  16. METHYLPREDNISOLONE. [Concomitant]
     Active Substance: METHYLPREDNISOLONE
     Indication: PNEUMONIA
     Dosage: 40 MG, Q12H
     Route: 042
     Dates: start: 20200408, end: 20200411
  17. VASOPRESSIN. [Concomitant]
     Active Substance: VASOPRESSIN
     Indication: SHOCK
     Dosage: 0.04 UNITS/MIN, CONTINUOUS INFUSION
     Route: 042
     Dates: start: 20200407, end: 20200412

REACTIONS (5)
  - Multiple organ dysfunction syndrome [Not Recovered/Not Resolved]
  - Alanine aminotransferase increased [Recovered/Resolved]
  - COVID-19 [Fatal]
  - Aspartate aminotransferase increased [Not Recovered/Not Resolved]
  - Alanine aminotransferase increased [Not Recovered/Not Resolved]

NARRATIVE: CASE EVENT DATE: 20200403
